FAERS Safety Report 25760916 (Version 2)
Quarter: 2025Q3

REPORT INFORMATION
  Report Type: Spontaneous
  Country: IN (occurrence: IN)
  Receive Date: 20250904
  Receipt Date: 20250911
  Transmission Date: 20251021
  Serious: Yes (Other)
  Sender: UCB
  Company Number: IN-UCBSA-2025053781

PATIENT
  Age: 37 Year
  Sex: Male

DRUGS (2)
  1. LEVETIRACETAM [Suspect]
     Active Substance: LEVETIRACETAM
     Indication: Seizure prophylaxis
  2. LEVETIRACETAM [Suspect]
     Active Substance: LEVETIRACETAM
     Indication: Off label use

REACTIONS (6)
  - Hallucination, visual [Recovered/Resolved]
  - Persecutory delusion [Recovered/Resolved]
  - Paranoia [Recovered/Resolved]
  - Food refusal [Recovered/Resolved]
  - Sleep disorder [Recovered/Resolved]
  - Off label use [Unknown]
